FAERS Safety Report 5269809-9 (Version None)
Quarter: 2007Q1

REPORT INFORMATION
  Report Type: 
  Country: None (occurrence: None)
  Receive Date: 20061218
  Receipt Date: 20060828
  Transmission Date: 20070707
  Serious: Yes (Other)
  Sender: FDA-Public Use
  Company Number: US200609000178

PATIENT
  Age: 48 Year
  Sex: Female

DRUGS (3)
  1. HUMALOG [Suspect]
     Indication: DIABETES MELLITUS NON-INSULIN-DEPENDENT
     Dosage: AS NEEDED
  2. LANTUS [Concomitant]
  3. BYETTA (EXENATIDE) PEN, DISPOSABLE [Concomitant]

REACTIONS (9)
  - BLOOD GLUCOSE DECREASED [None]
  - CYSTITIS [None]
  - DECREASED APPETITE [None]
  - HYPOTHERMIA [None]
  - LIBIDO INCREASED [None]
  - LOSS OF CONSCIOUSNESS [None]
  - METRORRHAGIA [None]
  - THERAPEUTIC RESPONSE UNEXPECTED [None]
  - WEIGHT DECREASED [None]
